FAERS Safety Report 10510517 (Version 1)
Quarter: 2014Q4

REPORT INFORMATION
  Report Type: Spontaneous
  Country: US (occurrence: None)
  Receive Date: 20141009
  Receipt Date: 20141009
  Transmission Date: 20150528
  Serious: No
  Sender: FDA-Public Use
  Company Number: None

PATIENT
  Age: 39 Year
  Sex: Female
  Weight: 75.75 kg

DRUGS (1)
  1. CLARITHROMYCIN 500 MG [Suspect]
     Active Substance: CLARITHROMYCIN
     Indication: HELICOBACTER INFECTION
     Dosage: CLARITHROMYCIN TWICE DAILY TAKEN BY MOUTH
     Route: 048

REACTIONS (3)
  - Early satiety [None]
  - Oropharyngeal pain [None]
  - Pain [None]
